FAERS Safety Report 7444595-2 (Version None)
Quarter: 2011Q2

REPORT INFORMATION
  Report Type: 
  Country: None (occurrence: None)
  Receive Date: 20110426
  Receipt Date: 20110426
  Transmission Date: 20111010
  Serious: No
  Sender: FDA-Public Use
  Company Number: None

PATIENT
  Age: 48 Year
  Sex: Male
  Weight: 71.6683 kg

DRUGS (1)
  1. SORAFENIB N/A BAYER [Suspect]

REACTIONS (1)
  - ERYTHEMA NODOSUM [None]
